FAERS Safety Report 12788437 (Version 1)
Quarter: 2016Q3

REPORT INFORMATION
  Report Type: Spontaneous
  Country: AR (occurrence: AR)
  Receive Date: 20160928
  Receipt Date: 20160928
  Transmission Date: 20161109
  Serious: Yes (Death, Life-Threatening, Hospitalization, Other)
  Sender: FDA-Public Use
  Company Number: AR-BRISTOL-MYERS SQUIBB COMPANY-BMS-2016-078139

PATIENT

DRUGS (2)
  1. NIVOLUMAB [Suspect]
     Active Substance: NIVOLUMAB
     Indication: METASTATIC MALIGNANT MELANOMA
     Dosage: UNK
     Route: 042
     Dates: start: 201608, end: 201608
  2. IPILIMUMAB [Suspect]
     Active Substance: IPILIMUMAB
     Indication: METASTATIC MALIGNANT MELANOMA
     Route: 042

REACTIONS (7)
  - Asterixis [Recovering/Resolving]
  - Transaminases increased [Recovering/Resolving]
  - Plasmapheresis [Unknown]
  - Thrombocytopenia [Recovering/Resolving]
  - Deep vein thrombosis [Recovering/Resolving]
  - Death [Fatal]
  - Therapeutic response decreased [Unknown]
